FAERS Safety Report 4640276-9 (Version None)
Quarter: 2005Q2

REPORT INFORMATION
  Report Type: 
  Country: None (occurrence: None)
  Receive Date: 20050420
  Receipt Date: 20050415
  Transmission Date: 20051028
  Serious: Yes (Hospitalization)
  Sender: FDA-Public Use
  Company Number: NL-GLAXOSMITHKLINE-B0378405A

PATIENT
  Sex: Female

DRUGS (2)
  1. RANITIDINE HYDROCHLORIDE [Suspect]
     Indication: ILL-DEFINED DISORDER
     Dosage: 10ML TWICE PER DAY
     Route: 048
     Dates: start: 20050315, end: 20050413
  2. DOMPERIDONE [Concomitant]
     Dosage: 10MG PER DAY
     Dates: start: 20050315

REACTIONS (2)
  - ADVERSE EVENT [None]
  - LIVER FUNCTION TEST ABNORMAL [None]
